FAERS Safety Report 7319920-3 (Version None)
Quarter: 2011Q1

REPORT INFORMATION
  Report Type: 
  Country: None (occurrence: None)
  Receive Date: 20110228
  Receipt Date: 20101208
  Transmission Date: 20110831
  Serious: No
  Sender: FDA-Public Use
  Company Number: A0898581A

PATIENT
  Age: 30 Year
  Sex: Female

DRUGS (10)
  1. DICLOFENAC [Concomitant]
  2. TRAZODONE [Concomitant]
  3. LAMICTAL [Suspect]
     Indication: EATING DISORDER
     Dosage: 25MG PER DAY
     Route: 048
     Dates: start: 20101205
  4. CITALOPRAM HYDROBROMIDE [Concomitant]
  5. FLONASE [Concomitant]
  6. ULTRAM [Concomitant]
  7. PROZAC [Concomitant]
  8. AMBIEN CR [Concomitant]
  9. TOPROL-XL [Concomitant]
  10. PLAQUENIL [Concomitant]

REACTIONS (5)
  - VULVOVAGINAL MYCOTIC INFECTION [None]
  - VULVOVAGINAL PRURITUS [None]
  - BLISTER [None]
  - PAIN [None]
  - VAGINAL DISCHARGE [None]
